FAERS Safety Report 25063622 (Version 1)
Quarter: 2025Q1

REPORT INFORMATION
  Report Type: Spontaneous
  Country: US (occurrence: None)
  Receive Date: 20250310
  Receipt Date: 20250310
  Transmission Date: 20250409
  Serious: Yes (Hospitalization)
  Sender: FDA-CTU
  Company Number: None

PATIENT
  Age: 80 Year
  Sex: Male
  Weight: 100 kg

DRUGS (1)
  1. XARELTO [Suspect]
     Active Substance: RIVAROXABAN
     Indication: Pulmonary embolism
     Dosage: 20.00 MG DAILY ORAL
     Route: 048
     Dates: end: 20240813

REACTIONS (9)
  - Gastrointestinal haemorrhage [None]
  - Gastric ulcer [None]
  - Candida infection [None]
  - Syncope [None]
  - Fall [None]
  - Head injury [None]
  - Haematemesis [None]
  - Vomiting [None]
  - Abdominal pain [None]

NARRATIVE: CASE EVENT DATE: 20240813
